FAERS Safety Report 7513131-4 (Version None)
Quarter: 2011Q2

REPORT INFORMATION
  Report Type: 
  Country: None (occurrence: None)
  Receive Date: 20110531
  Receipt Date: 20110517
  Transmission Date: 20111010
  Serious: Yes (Other)
  Sender: FDA-Public Use
  Company Number: US-CELGENEUS-AX251-09-0415

PATIENT
  Sex: Male
  Weight: 66.6 kg

DRUGS (18)
  1. HALOPERIDOL LACTATE [Concomitant]
     Dosage: 2 MG Q1HPRN
     Route: 065
  2. ACETAMINOPHEN [Concomitant]
     Dosage: 650 MG Q4HPRN
     Route: 065
  3. SINEMET [Concomitant]
     Indication: TREMOR
     Route: 065
  4. METRONIDAZOLE [Concomitant]
     Dosage: 500 MILLIGRAM
     Route: 065
  5. SENNOSIDES [Concomitant]
     Dosage: 2 TABS BID
     Route: 065
  6. MORPHINE [Concomitant]
     Dosage: 30 MILLIGRAM
     Route: 065
  7. SODIUM CHLORIDE [Concomitant]
     Dosage: 1000 MILLILITER
     Route: 065
  8. CARBIDOPA [Concomitant]
     Indication: TREMOR
     Route: 065
  9. LEVODOPA [Concomitant]
     Indication: TREMOR
     Route: 065
  10. TENORMIN [Concomitant]
     Indication: BLOOD PRESSURE
     Route: 065
  11. ONDANSETRON [Concomitant]
     Route: 065
  12. ABRAXANE [Suspect]
     Route: 013
     Dates: start: 20090423, end: 20090609
  13. PIPERACILLIN/TAZOBACTEM [Concomitant]
     Route: 065
  14. POLYETHYLENE GLYCOL [Concomitant]
     Route: 065
  15. FAMOTIDINE [Concomitant]
     Dosage: 20 MG Q 12 H
     Route: 065
  16. AMANTADINE HCL [Concomitant]
     Indication: TREMOR
     Route: 065
  17. LEVOFLOXACIN [Concomitant]
     Dosage: 500 MILLIGRAM
     Route: 065
  18. ATENOLOL [Concomitant]
     Dosage: 75 MG QAM
     Route: 065

REACTIONS (2)
  - DIZZINESS [None]
  - NEUTROPENIA [None]
